FAERS Safety Report 7470987-1 (Version None)
Quarter: 2011Q2

REPORT INFORMATION
  Report Type: 
  Country: None (occurrence: None)
  Receive Date: 20110510
  Receipt Date: 20110506
  Transmission Date: 20111010
  Serious: No
  Sender: FDA-Public Use
  Company Number: US-PFIZER INC-2011097861

PATIENT
  Sex: Female
  Weight: 100 kg

DRUGS (1)
  1. CHANTIX [Suspect]
     Indication: SMOKING CESSATION THERAPY
     Dosage: 0.5 MG, 1X/DAY
     Route: 048
     Dates: start: 20110504

REACTIONS (9)
  - SKIN DISORDER [None]
  - PARAESTHESIA [None]
  - ANGER [None]
  - PRURITUS [None]
  - RASH [None]
  - SCREAMING [None]
  - ERYTHEMA [None]
  - CRYING [None]
  - HOSTILITY [None]
